FAERS Safety Report 24292222 (Version 1)
Quarter: 2024Q3

REPORT INFORMATION
  Report Type: Spontaneous
  Country: US (occurrence: None)
  Receive Date: 20240906
  Receipt Date: 20240906
  Transmission Date: 20241017
  Serious: No
  Sender: DOMPE FARMACEUTICI
  Company Number: US-FARMAPROD-202307-2201

PATIENT
  Age: 68 Year
  Sex: Male

DRUGS (15)
  1. OXERVATE [Suspect]
     Active Substance: CENEGERMIN-BKBJ
     Indication: Neurotrophic keratopathy
     Route: 047
     Dates: start: 20230710
  2. OXERVATE [Suspect]
     Active Substance: CENEGERMIN-BKBJ
  3. OXERVATE [Suspect]
     Active Substance: CENEGERMIN-BKBJ
  4. MAGNESIUM CITRATE [Concomitant]
     Active Substance: MAGNESIUM CITRATE
  5. ZINC-220 [Concomitant]
     Dosage: 50 (220) MG
  6. COQMAX-OMEGA [Concomitant]
     Dosage: 174 MG-50 MG
  7. ALFALFA [Concomitant]
     Active Substance: ALFALFA
  8. GINKGO [Concomitant]
     Active Substance: GINKGO
  9. COLCHICINE\PROBENECID [Concomitant]
     Active Substance: COLCHICINE\PROBENECID
  10. VITAMIN B12 [Concomitant]
     Active Substance: CYANOCOBALAMIN
  11. VITAMINS [Concomitant]
     Active Substance: VITAMINS
  12. ELDERBERRY ZINC [Concomitant]
     Dosage: 90 MG-15 MG
  13. FISH OIL [Concomitant]
     Active Substance: FISH OIL
  14. DIETARY SUPPLEMENT\HERBALS\MILK THISTLE [Concomitant]
     Active Substance: MILK THISTLE
     Dosage: 175-120 MG
  15. TRAZODONE HCL [Concomitant]
     Active Substance: TRAZODONE HYDROCHLORIDE

REACTIONS (4)
  - Wrong technique in product usage process [Recovered/Resolved]
  - Ocular discomfort [Not Recovered/Not Resolved]
  - Product dose omission issue [Unknown]
  - Eye pain [Not Recovered/Not Resolved]

NARRATIVE: CASE EVENT DATE: 20230901
